FAERS Safety Report 6771986-5 (Version None)
Quarter: 2010Q2

REPORT INFORMATION
  Report Type: 
  Country: None (occurrence: None)
  Receive Date: 20100616
  Receipt Date: 20091204
  Transmission Date: 20101027
  Serious: Yes (Other)
  Sender: FDA-Public Use
  Company Number: US-ASTRAZENECA-2009SE30295

PATIENT
  Age: 2660 Day
  Sex: Male
  Weight: 18.6 kg

DRUGS (2)
  1. RHINOCORT [Suspect]
     Dosage: 2 SPRAYS IN EACH NOSTRIL DAILY
     Route: 045
     Dates: start: 20090601
  2. SUDAFED 12 HOUR [Concomitant]
     Indication: RHINORRHOEA
     Dates: start: 20091203

REACTIONS (1)
  - ANAPHYLACTIC REACTION [None]
